FAERS Safety Report 12905326 (Version 1)
Quarter: 2016Q4

REPORT INFORMATION
  Report Type: Spontaneous
  Country: CH (occurrence: CH)
  Receive Date: 20161103
  Receipt Date: 20161103
  Transmission Date: 20170207
  Serious: Yes (Disabling, Other)
  Sender: FDA-Public Use
  Company Number: CH-AMGEN-CHESP2016150767

PATIENT
  Sex: Female

DRUGS (3)
  1. PROLIA [Suspect]
     Active Substance: DENOSUMAB
     Dosage: 60 MG, UNK
     Route: 058
     Dates: start: 201602
  2. VI-DE 3 [Concomitant]
     Active Substance: CHOLECALCIFEROL
     Dosage: 10 DROPS, QD
     Route: 048
     Dates: start: 2014
  3. PROLIA [Suspect]
     Active Substance: DENOSUMAB
     Indication: OSTEOPOROSIS
     Dosage: 60 MG, UNK
     Route: 058
     Dates: start: 201409, end: 201409

REACTIONS (4)
  - Rebound effect [Recovered/Resolved with Sequelae]
  - Bone density decreased [Not Recovered/Not Resolved]
  - Lumbar vertebral fracture [Recovered/Resolved with Sequelae]
  - Thoracic vertebral fracture [Recovered/Resolved with Sequelae]

NARRATIVE: CASE EVENT DATE: 2015
